FAERS Safety Report 6981598-6 (Version None)
Quarter: 2010Q3

REPORT INFORMATION
  Report Type: 
  Country: None (occurrence: None)
  Receive Date: 20100825
  Receipt Date: 20100728
  Transmission Date: 20110219
  Serious: No
  Sender: FDA-Public Use
  Company Number: 201008002

PATIENT
  Age: 63 Year
  Sex: Male
  Weight: 79.3795 kg

DRUGS (4)
  1. XIAFLEX [Suspect]
     Indication: DUPUYTREN'S CONTRACTURE
     Dosage: 0.58 MG, 1 IN 1 D, INTRALESIONAL
     Route: 026
     Dates: start: 20100727, end: 20100727
  2. ALBUTEROL [Concomitant]
  3. ASPIRIN [Concomitant]
  4. VITAMIN (VITAMINS NOS) [Concomitant]

REACTIONS (1)
  - DRUG INEFFECTIVE [None]
